FAERS Safety Report 12706825 (Version 1)
Quarter: 2016Q3

REPORT INFORMATION
  Report Type: Spontaneous
  Country: IT (occurrence: IT)
  Receive Date: 20160901
  Receipt Date: 20160901
  Transmission Date: 20161109
  Serious: Yes (Hospitalization)
  Sender: FDA-Public Use
  Company Number: IT-GLAXOSMITHKLINE-IT2016GSK125243

PATIENT
  Age: 42 Year
  Sex: Male

DRUGS (7)
  1. VERAPAMIL [Concomitant]
     Active Substance: VERAPAMIL HYDROCHLORIDE
  2. ANTRA [Concomitant]
     Active Substance: OMEPRAZOLE
  3. SANDOMIGRAN [Suspect]
     Active Substance: PIZOTYLINE
     Indication: CLUSTER HEADACHE
     Dosage: UNK
     Route: 048
     Dates: start: 20160101, end: 20160816
  4. DELTACORTENE [Suspect]
     Active Substance: PREDNISONE
     Dosage: 50 MG, QD
     Route: 048
     Dates: start: 20160101, end: 20160816
  5. IMIGRAN [Suspect]
     Active Substance: SUMATRIPTAN SUCCINATE
     Indication: CLUSTER HEADACHE
     Dosage: UNK
     Route: 048
     Dates: start: 20160101, end: 20160816
  6. MELATONINA [Concomitant]
  7. MAG 2 [Concomitant]
     Active Substance: MAGNESIUM CHLORIDE

REACTIONS (4)
  - Headache [Recovering/Resolving]
  - Drug abuse [Recovering/Resolving]
  - Joint swelling [Recovering/Resolving]
  - Weight increased [Recovering/Resolving]

NARRATIVE: CASE EVENT DATE: 20160816
